FAERS Safety Report 10782147 (Version 1)
Quarter: 2015Q1

REPORT INFORMATION
  Report Type: Spontaneous
  Country: US (occurrence: US)
  Receive Date: 20150210
  Receipt Date: 20150210
  Transmission Date: 20150721
  Serious: No
  Sender: FDA-Public Use
  Company Number: US-GLAXOSMITHKLINE-A1073570A

PATIENT

DRUGS (2)
  1. WALGREEN NICOTINE [Suspect]
     Active Substance: NICOTINE
     Indication: EX-TOBACCO USER
  2. NICOTINE PATCH UNKNOWN BRAND TRANSDERMAL PATCH [Suspect]
     Active Substance: NICOTINE
     Indication: EX-TOBACCO USER

REACTIONS (7)
  - Adverse event [Unknown]
  - Emotional disorder [Unknown]
  - Abnormal dreams [Recovered/Resolved]
  - Application site pruritus [Recovered/Resolved]
  - Mood swings [Recovered/Resolved]
  - Application site erythema [Recovered/Resolved]
  - Ill-defined disorder [Unknown]
